FAERS Safety Report 24324270 (Version 1)
Quarter: 2024Q3

REPORT INFORMATION
  Report Type: Spontaneous
  Country: US (occurrence: None)
  Receive Date: 20240915
  Receipt Date: 20240915
  Transmission Date: 20241017
  Serious: No
  Sender: Public
  Company Number: None

PATIENT
  Age: 34 Year
  Sex: Female
  Weight: 93.6 kg

DRUGS (7)
  1. TIOCONAZOLE [Suspect]
     Active Substance: TIOCONAZOLE
     Indication: Fungal infection
     Dosage: 1 PREFILLED APPLICAT ONCE VAGINAL ?
     Route: 067
     Dates: start: 20240912, end: 20240912
  2. MYO-D INOSITOL [Concomitant]
  3. ALLEGRA [Concomitant]
     Active Substance: FEXOFENADINE HYDROCHLORIDE
  4. COLLAGEN [Concomitant]
     Active Substance: COLLAGEN
  5. MAGNESIUM [Concomitant]
     Active Substance: MAGNESIUM
  6. BCOMPLEX [Concomitant]
  7. ALL DAILY [Concomitant]

REACTIONS (7)
  - Burning sensation [None]
  - Swelling [None]
  - Pain [None]
  - Loss of personal independence in daily activities [None]
  - Impaired work ability [None]
  - Gait inability [None]
  - Drug ineffective [None]

NARRATIVE: CASE EVENT DATE: 20240913
